FAERS Safety Report 9922495 (Version 1)
Quarter: 2014Q1

REPORT INFORMATION
  Report Type: Spontaneous
  Country: FR (occurrence: FR)
  Receive Date: 20140225
  Receipt Date: 20140225
  Transmission Date: 20141002
  Serious: Yes (Hospitalization, Other)
  Sender: FDA-Public Use
  Company Number: FR-PFIZER INC-2014047006

PATIENT
  Age: 77 Year
  Sex: Female

DRUGS (7)
  1. TAHOR [Suspect]
     Indication: AORTIC THROMBOSIS
     Dosage: 40 MG, DAILY
     Route: 048
     Dates: start: 20131129, end: 20131216
  2. TAHOR [Suspect]
     Dosage: 40 MG, DAILY
     Route: 048
     Dates: start: 20131218, end: 20131219
  3. TAHOR [Suspect]
     Dosage: 40 MG, DAILY
     Route: 048
     Dates: start: 20131231, end: 20140113
  4. LOXEN [Concomitant]
     Indication: HYPERTENSION
     Dosage: UNK
  5. KARDEGIC [Concomitant]
     Indication: AORTIC THROMBOSIS
     Dosage: 160 MG, DAILY
  6. TRIATEC [Concomitant]
     Indication: AORTIC THROMBOSIS
     Dosage: 10 MG, DAILY
  7. LOVENOX [Concomitant]
     Indication: AORTIC THROMBOSIS
     Dosage: UNK

REACTIONS (5)
  - Mixed liver injury [Recovering/Resolving]
  - Hypocholesterolaemia [Recovering/Resolving]
  - Confusional state [Recovered/Resolved]
  - Multi-organ failure [Unknown]
  - Pneumocystis jirovecii pneumonia [Unknown]
